FAERS Safety Report 20068669 (Version 1)
Quarter: 2021Q4

REPORT INFORMATION
  Report Type: Other
  Country: TW (occurrence: TW)
  Receive Date: 20211115
  Receipt Date: 20211115
  Transmission Date: 20220304
  Serious: Yes (Hospitalization)
  Sender: FDA-Public Use
  Company Number: TW-SAMOHPHARM-2021004666

PATIENT

DRUGS (3)
  1. HEME [Suspect]
     Active Substance: HEME
     Indication: Prophylaxis
     Dosage: 14 DOSES
     Route: 042
     Dates: start: 2005
  2. HEME [Suspect]
     Active Substance: HEME
     Indication: Porphyria acute
     Dosage: 19 DOSES
     Route: 042
     Dates: start: 201711, end: 2017
  3. HEME [Suspect]
     Active Substance: HEME
     Indication: Off label use
     Dosage: 3 MILLIGRAM/KILOGRAM, QW
     Route: 042
     Dates: start: 201712

REACTIONS (4)
  - Disease recurrence [Recovered/Resolved]
  - Iron overload [Unknown]
  - Off label use [Recovered/Resolved]
  - Product use issue [Recovered/Resolved]

NARRATIVE: CASE EVENT DATE: 20171101
